FAERS Safety Report 10520425 (Version 2)
Quarter: 2014Q4

REPORT INFORMATION
  Report Type: Report from Study
  Country: US (occurrence: US)
  Receive Date: 20141015
  Receipt Date: 20141015
  Transmission Date: 20150528
  Serious: Yes (Hospitalization)
  Sender: FDA-Public Use
  Company Number: US-GLAXOSMITHKLINE-Z0021878A

PATIENT
  Age: 21 Year
  Sex: Male
  Weight: 72.5 kg

DRUGS (8)
  1. PLACEBO [Suspect]
     Active Substance: UNSPECIFIED INGREDIENT
     Indication: LUPUS NEPHRITIS
     Dosage: UNK, CYC
     Route: 042
     Dates: start: 20130731
  2. CELLCEPT [Concomitant]
     Active Substance: MYCOPHENOLATE MOFETIL\MYCOPHENOLATE MOFETIL HYDROCHLORIDE
     Indication: LUPUS NEPHRITIS
     Dosage: 3 G, QD
     Route: 048
     Dates: start: 20130731, end: 20140115
  3. PREDNISONE. [Concomitant]
     Active Substance: PREDNISONE
     Indication: LUPUS NEPHRITIS
     Dosage: 40 MG, QD
     Route: 048
     Dates: start: 20131220
  4. BLINDED BELIMUMAB [Suspect]
     Active Substance: BELIMUMAB
     Indication: LUPUS NEPHRITIS
     Dosage: UNK, CYC
     Route: 042
     Dates: start: 20130731
  5. BLINDED BELIMUMAB [Suspect]
     Active Substance: BELIMUMAB
     Indication: LUPUS NEPHRITIS
     Dosage: UNK, CYC
     Route: 042
     Dates: start: 20130731
  6. BLINDED BELIMUMAB [Suspect]
     Active Substance: BELIMUMAB
     Indication: LUPUS NEPHRITIS
     Dosage: UNK, CYC
     Route: 042
     Dates: start: 20130731
  7. BLINDED NO THERAPY [Suspect]
     Active Substance: UNSPECIFIED INGREDIENT
     Indication: LUPUS NEPHRITIS
     Dosage: UNK, CYC
     Route: 042
     Dates: start: 20130731
  8. PLACEBO [Suspect]
     Active Substance: UNSPECIFIED INGREDIENT
     Indication: LUPUS NEPHRITIS
     Dosage: UNK, CYC
     Route: 042
     Dates: start: 20130731

REACTIONS (5)
  - Aortic valve calcification [None]
  - Left atrial dilatation [None]
  - Aortic valve incompetence [None]
  - Bronchitis [Recovered/Resolved]
  - Pulmonary hypertension [None]

NARRATIVE: CASE EVENT DATE: 20131226
